FAERS Safety Report 6202431-6 (Version None)
Quarter: 2009Q2

REPORT INFORMATION
  Report Type: 
  Country: None (occurrence: None)
  Receive Date: 20090521
  Receipt Date: 20090521
  Transmission Date: 20091009
  Serious: No
  Sender: FDA-Public Use
  Company Number: None

PATIENT
  Age: 87 Year
  Sex: Male
  Weight: 82.5547 kg

DRUGS (2)
  1. FENTANYL-25 [Suspect]
     Indication: BACK PAIN
     Dosage: 25 MCG 1 PATCH Q 72 H TRANSDERMAL
     Route: 062
     Dates: start: 20090401
  2. FENTANYL [Suspect]
     Indication: BACK PAIN
     Dosage: 12.5 MCG 1 PATCH Q 72 H TRANSDERMAL
     Route: 062
     Dates: start: 20090401

REACTIONS (6)
  - ASTHENIA [None]
  - CARDIAC ARREST [None]
  - DYSPNOEA [None]
  - FEAR [None]
  - FEELING ABNORMAL [None]
  - PANIC DISORDER [None]
